FAERS Safety Report 6357132-0 (Version None)
Quarter: 2009Q3

REPORT INFORMATION
  Report Type: 
  Country: None (occurrence: None)
  Receive Date: 20090910
  Receipt Date: 20090902
  Transmission Date: 20100115
  Serious: Yes (Other)
  Sender: FDA-Public Use
  Company Number: 2009010092

PATIENT
  Age: 21 Year
  Sex: Female
  Weight: 99.7913 kg

DRUGS (5)
  1. NUVIGIL [Suspect]
     Indication: NARCOLEPSY
     Dosage: 250 MG (250 MG, 1 IN 1 D), ORAL
     Route: 048
     Dates: start: 20090722
  2. ABILIFY [Concomitant]
  3. ZOLOFT [Concomitant]
  4. NEXIUM [Concomitant]
  5. TYLENOL #3 (CODEINE PHOSPHATE, PARACETAMOL) [Concomitant]

REACTIONS (4)
  - DRUG HYPERSENSITIVITY [None]
  - DRY MOUTH [None]
  - HEAD DISCOMFORT [None]
  - PHARYNGEAL OEDEMA [None]
